FAERS Safety Report 11143205 (Version 1)
Quarter: 2015Q2

REPORT INFORMATION
  Report Type: Spontaneous
  Country: US (occurrence: US)
  Receive Date: 20150526
  Receipt Date: 20150526
  Transmission Date: 20150821
  Serious: Yes (Other)
  Sender: FDA-Public Use
  Company Number: US-NOVEN PHARMACEUTICALS, INC.-15US013674

PATIENT
  Age: 46 Year
  Sex: Female

DRUGS (1)
  1. MINIVELLE [Suspect]
     Active Substance: ESTRADIOL
     Indication: PRODUCT USED FOR UNKNOWN INDICATION
     Dosage: 0.075 MG/HR, TWICE WEEKLY
     Route: 062
     Dates: start: 2014, end: 201502

REACTIONS (9)
  - Cerebrovascular accident [Recovered/Resolved]
  - Road traffic accident [Unknown]
  - Aggression [Unknown]
  - Yellow skin [Unknown]
  - Treatment noncompliance [Unknown]
  - Depression [Unknown]
  - Abnormal behaviour [Unknown]
  - Wrong technique in drug usage process [Unknown]
  - Malaise [Unknown]

NARRATIVE: CASE EVENT DATE: 2014
